FAERS Safety Report 6071085-4 (Version None)
Quarter: 2009Q1

REPORT INFORMATION
  Report Type: 
  Country: None (occurrence: None)
  Receive Date: 20090209
  Receipt Date: 20081022
  Transmission Date: 20090719
  Serious: Yes (Other)
  Sender: FDA-Public Use
  Company Number: A0753051A

PATIENT
  Sex: Female

DRUGS (2)
  1. PAXIL [Suspect]
     Indication: OBSESSIVE-COMPULSIVE DISORDER
     Route: 048
     Dates: end: 20080101
  2. SEIZURE MEDICATION [Suspect]

REACTIONS (4)
  - AMNESIA [None]
  - CONVULSION [None]
  - DRUG INTERACTION [None]
  - PRESYNCOPE [None]
